FAERS Safety Report 5795418-9 (Version None)
Quarter: 2008Q2

REPORT INFORMATION
  Report Type: 
  Country: None (occurrence: None)
  Receive Date: 20080626
  Receipt Date: 20080613
  Transmission Date: 20081010
  Serious: Yes (Other)
  Sender: FDA-Public Use
  Company Number: 2008-179133-NL

PATIENT
  Age: 18 Year
  Sex: Female
  Weight: 119 kg

DRUGS (1)
  1. IMPLANON [Suspect]
     Indication: CONTRACEPTION
     Dosage: SUBDERMAL
     Route: 059
     Dates: start: 20080321, end: 20080613

REACTIONS (4)
  - DIZZINESS [None]
  - EYE MOVEMENT DISORDER [None]
  - HYPOAESTHESIA [None]
  - NAUSEA [None]
